FAERS Safety Report 4630981-2 (Version None)
Quarter: 2005Q2

REPORT INFORMATION
  Report Type: 
  Country: None (occurrence: None)
  Receive Date: 20050406
  Receipt Date: 20050406
  Transmission Date: 20051028
  Serious: Yes (Hospitalization)
  Sender: FDA-Public Use
  Company Number: None

PATIENT
  Age: 73 Year
  Sex: Male
  Weight: 90 kg

DRUGS (43)
  1. PACLITAXEL [Suspect]
     Indication: NON-SMALL CELL LUNG CANCER
     Dosage: 111 MG QD INTRAVENOUS
     Route: 042
     Dates: start: 20020605, end: 20020617
  2. CARBOPLATIN [Suspect]
     Dosage: 197 MG  QD  INTRAVENOUS
     Route: 042
     Dates: start: 20020605, end: 20020617
  3. PREDNISONE [Concomitant]
  4. DILTIAZEM [Concomitant]
  5. METHYLPREDNISOLONE [Concomitant]
  6. HEPARIN [Concomitant]
  7. WARFARIN SODIUM [Concomitant]
  8. MORPH [Concomitant]
  9. LEVOFLOXACIN [Concomitant]
  10. PANTOPRAZOLE SODIUM [Concomitant]
  11. GLIPIZIDE [Concomitant]
  12. DILTIAZEM [Concomitant]
  13. DIGOXIN [Concomitant]
  14. INSULIN [Concomitant]
  15. MORPHINE [Concomitant]
  16. PROPOXYPHENE HCL [Concomitant]
  17. ACETAMINOPHEN [Concomitant]
  18. ALBUTEROL [Concomitant]
  19. O2 [Concomitant]
  20. ACETAMINOPHEN [Concomitant]
  21. DOCUSATE [Concomitant]
  22. PROPOXYPHENE HCL [Concomitant]
  23. ZINC OXIDE OINTMENT [Concomitant]
  24. GLIPIZIDE [Concomitant]
  25. CELEBREX [Concomitant]
  26. CELEBREX [Concomitant]
  27. POLYTRIM [Concomitant]
  28. IBUPROFEN [Concomitant]
  29. CLINDAMYCIN [Concomitant]
  30. MG SULFATE [Concomitant]
  31. LACTULOSE [Concomitant]
  32. VANCOMYCIN [Concomitant]
  33. TRIAMCINOLONE [Concomitant]
  34. SALMETEROL [Concomitant]
  35. POLYTRIM [Concomitant]
  36. FLUTICASONE PROPIONATE [Concomitant]
  37. VANCOMYCIN [Concomitant]
  38. VITAMIN K [Concomitant]
  39. VICODIN [Concomitant]
  40. COUMADIN [Concomitant]
  41. MORPH [Concomitant]
  42. PANTOPRAZOLE SODIUM [Concomitant]
  43. AMITRIPTYLINE HCL TAB [Concomitant]

REACTIONS (11)
  - ACUTE PRERENAL FAILURE [None]
  - ARTHROPATHY [None]
  - BACK PAIN [None]
  - BENIGN PROSTATIC HYPERPLASIA [None]
  - CELLULITIS [None]
  - DEEP VEIN THROMBOSIS [None]
  - DIABETES MELLITUS [None]
  - PNEUMONIA [None]
  - RENAL FAILURE ACUTE [None]
  - RENAL FAILURE CHRONIC [None]
  - SYNCOPE [None]
